FAERS Safety Report 6059054-1 (Version None)
Quarter: 2009Q1

REPORT INFORMATION
  Report Type: 
  Country: None (occurrence: None)
  Receive Date: 20090130
  Receipt Date: 20090119
  Transmission Date: 20090719
  Serious: Yes (Hospitalization)
  Sender: FDA-Public Use
  Company Number: B0554957A

PATIENT
  Age: 47 Year
  Sex: Female

DRUGS (7)
  1. ZOPHREN [Suspect]
     Indication: PREMEDICATION
     Dosage: 8MG PER DAY
     Route: 042
     Dates: start: 20071002
  2. ATROPINE [Suspect]
     Indication: PREMEDICATION
     Dosage: .25MG PER DAY
     Route: 058
     Dates: start: 20071002
  3. AVASTIN [Suspect]
     Dosage: 260MG PER DAY
     Route: 042
     Dates: start: 20071002
  4. CAMPTOSAR [Suspect]
     Dosage: 280MG PER DAY
     Route: 042
     Dates: start: 20071002
  5. FLUOROURACIL [Suspect]
     Dosage: 640KIU PER DAY
     Route: 042
     Dates: start: 20071002
  6. FLUOROURACIL [Suspect]
     Dosage: 3800MG PER DAY
     Route: 042
     Dates: start: 20081002, end: 20081004
  7. ELVORINE [Suspect]
     Dosage: 320MG PER DAY
     Route: 042
     Dates: start: 20071002

REACTIONS (3)
  - PRURITUS [None]
  - RASH [None]
  - TOXIC SKIN ERUPTION [None]
